FAERS Safety Report 12162254 (Version 2)
Quarter: 2016Q4

REPORT INFORMATION
  Report Type: Report from Study
  Country: JP (occurrence: JP)
  Receive Date: 20160309
  Receipt Date: 20161108
  Transmission Date: 20170207
  Serious: Yes (Hospitalization)
  Sender: FDA-Public Use
  Company Number: JP-AMGEN-JPNNI2016029291

PATIENT
  Age: 72 Year
  Sex: Male

DRUGS (1)
  1. DARBEPOETIN ALFA [Suspect]
     Active Substance: DARBEPOETIN ALFA
     Indication: PRODUCT USED FOR UNKNOWN INDICATION
     Dosage: UNK
     Route: 042
     Dates: start: 20140414, end: 20150810

REACTIONS (3)
  - Ischaemic stroke [Unknown]
  - Gastrointestinal haemorrhage [Recovering/Resolving]
  - Osteomyelitis [Unknown]

NARRATIVE: CASE EVENT DATE: 20150911
